FAERS Safety Report 7046053-6 (Version None)
Quarter: 2010Q4

REPORT INFORMATION
  Report Type: 
  Country: None (occurrence: None)
  Receive Date: 20101013
  Receipt Date: 20101013
  Transmission Date: 20110411
  Serious: Yes (Hospitalization)
  Sender: FDA-Public Use
  Company Number: None

PATIENT
  Age: 48 Year
  Sex: Female
  Weight: 99.7913 kg

DRUGS (3)
  1. OXYCONTIN [Suspect]
     Indication: FIBROMYALGIA
  2. OXYCONTIN [Suspect]
     Indication: PAIN
  3. OXYCONTIN [Suspect]
     Indication: THERMAL BURN

REACTIONS (2)
  - DRUG WITHDRAWAL SYNDROME [None]
  - PRODUCT FORMULATION ISSUE [None]
